FAERS Safety Report 8222794-X (Version None)
Quarter: 2012Q1

REPORT INFORMATION
  Report Type: 
  Country: None (occurrence: None)
  Receive Date: 20120320
  Receipt Date: 20120302
  Transmission Date: 20120608
  Serious: Yes (Death, Other)
  Sender: FDA-Public Use
  Company Number: JP-PFIZER INC-2012053012

PATIENT
  Age: 83 Year
  Sex: Male
  Weight: 61.4 kg

DRUGS (4)
  1. VFEND [Suspect]
     Indication: FEBRILE NEUTROPENIA
     Dosage: 400 MG/DAY
     Route: 048
  2. VFEND [Suspect]
     Dosage: 200 MG, 2X/DAY
  3. TEICOPLANIN [Concomitant]
     Dosage: 200 MG, 1X/DAY
  4. PIPERACILLIN AND TAZOBACTAM [Concomitant]
     Dosage: 4.5 G, 3X/DAY

REACTIONS (6)
  - CEREBRAL INFARCTION [None]
  - FUNGAEMIA [None]
  - DISORIENTATION [None]
  - VISUAL IMPAIRMENT [None]
  - DIZZINESS [None]
  - DEPRESSED LEVEL OF CONSCIOUSNESS [None]
